FAERS Safety Report 7968706-5 (Version None)
Quarter: 2011Q4

REPORT INFORMATION
  Report Type: 
  Country: None (occurrence: None)
  Receive Date: 20111209
  Receipt Date: 20111130
  Transmission Date: 20120403
  Serious: Yes (Hospitalization)
  Sender: FDA-Public Use
  Company Number: JP-JNJFOC-20111203062

PATIENT
  Age: 26 Year
  Sex: Male

DRUGS (5)
  1. MESALAMINE [Concomitant]
     Route: 048
     Dates: start: 20110701
  2. PREDNISONE [Suspect]
     Indication: PRODUCT USED FOR UNKNOWN INDICATION
     Route: 048
     Dates: start: 20110701
  3. ADALIMUMAB [Suspect]
     Indication: PRODUCT USED FOR UNKNOWN INDICATION
     Route: 048
     Dates: start: 20070201
  4. REMICADE [Suspect]
     Indication: CROHN'S DISEASE
     Route: 042
     Dates: start: 20110101
  5. METHOTREXATE [Suspect]
     Indication: PRODUCT USED FOR UNKNOWN INDICATION
     Route: 048
     Dates: start: 20070201, end: 20110701

REACTIONS (6)
  - GASTROINTESTINAL PERFORATION [None]
  - FUNGAEMIA [None]
  - PNEUMONIA [None]
  - PYREXIA [None]
  - CROHN'S DISEASE [None]
  - PELVIC ABSCESS [None]
